APPROVED DRUG PRODUCT: HALOPERIDOL DECANOATE
Active Ingredient: HALOPERIDOL DECANOATE
Strength: EQ 50MG BASE/ML
Dosage Form/Route: INJECTABLE;INJECTION
Application: A075176 | Product #001
Applicant: HOSPIRA INC
Approved: Feb 9, 2000 | RLD: No | RS: No | Type: DISCN